FAERS Safety Report 15230281 (Version 2)
Quarter: 2019Q3

REPORT INFORMATION
  Report Type: Spontaneous
  Country: US (occurrence: US)
  Receive Date: 20180802
  Receipt Date: 20190805
  Transmission Date: 20191004
  Serious: Yes (Other)
  Sender: FDA-Public Use
  Company Number: US-ACCORD-067872

PATIENT
  Age: 54 Year
  Sex: Female
  Weight: 109.32 kg

DRUGS (14)
  1. DOCETAXEL ACCORD [Suspect]
     Active Substance: DOCETAXEL
     Indication: BREAST CANCER
     Dosage: NUMBER OF CYCLES: 04
     Dates: start: 20140127, end: 20140331
  2. JANUVIA [Concomitant]
     Active Substance: SITAGLIPTIN PHOSPHATE
  3. TIZANIDINE. [Concomitant]
     Active Substance: TIZANIDINE
     Dates: start: 20101002
  4. METFORMIN [Concomitant]
     Active Substance: METFORMIN HYDROCHLORIDE
  5. BENAZEPRIL/BENAZEPRIL HYDROCHLORIDE [Concomitant]
     Dates: start: 20090824
  6. SIMVASTATIN. [Concomitant]
     Active Substance: SIMVASTATIN
     Dates: start: 20111212
  7. MORPHINE [Concomitant]
     Active Substance: MORPHINE
     Dosage: EXTENDED RELEASE
     Dates: start: 20100825
  8. SERTRALINE [Concomitant]
     Active Substance: SERTRALINE HYDROCHLORIDE
  9. COLECALCIFEROL [Concomitant]
     Active Substance: CHOLECALCIFEROL
  10. PIOGLITAZONE HYDROCHLORIDE/METFORMIN HYDROCHLORIDE [Concomitant]
     Dates: start: 2013
  11. AMLODIPINE [Concomitant]
     Active Substance: AMLODIPINE BESYLATE
     Dates: start: 20110217
  12. FUROSEMIDE. [Concomitant]
     Active Substance: FUROSEMIDE
  13. LYRICA [Concomitant]
     Active Substance: PREGABALIN
     Dates: start: 20100728
  14. LANTUS [Concomitant]
     Active Substance: INSULIN GLARGINE
     Dates: start: 2013

REACTIONS (1)
  - Alopecia [Not Recovered/Not Resolved]

NARRATIVE: CASE EVENT DATE: 201402
